FAERS Safety Report 11502886 (Version 2)
Quarter: 2015Q4

REPORT INFORMATION
  Report Type: Spontaneous
  Country: US (occurrence: US)
  Receive Date: 20150914
  Receipt Date: 20151208
  Transmission Date: 20160304
  Serious: Yes (Other)
  Sender: FDA-Public Use
  Company Number: US-ASTELLAS-2015US029236

PATIENT
  Age: 81 Year
  Sex: Male

DRUGS (2)
  1. XTANDI [Suspect]
     Active Substance: ENZALUTAMIDE
     Indication: BONE CANCER
  2. XTANDI [Suspect]
     Active Substance: ENZALUTAMIDE
     Indication: PROSTATE CANCER
     Route: 065

REACTIONS (8)
  - Implantable defibrillator insertion [Unknown]
  - Oropharyngeal pain [Unknown]
  - Prostatic specific antigen increased [Unknown]
  - Waist circumference increased [Unknown]
  - Flatulence [Unknown]
  - Peripheral swelling [Unknown]
  - Hypotension [Unknown]
  - Renal disorder [Unknown]

NARRATIVE: CASE EVENT DATE: 20151201
